FAERS Safety Report 5228371-7 (Version None)
Quarter: 2007Q1

REPORT INFORMATION
  Report Type: 
  Country: None (occurrence: None)
  Receive Date: 20070131
  Receipt Date: 20070123
  Transmission Date: 20070707
  Serious: Yes (Death)
  Sender: FDA-Public Use
  Company Number: 235438

PATIENT
  Sex: Male

DRUGS (5)
  1. RITUXAN [Suspect]
     Indication: NON-HODGKIN'S LYMPHOMA
  2. ADRIAMYCIN PFS [Concomitant]
  3. CYCLOPHOSPHAMIDE [Concomitant]
  4. ONCOVIN [Concomitant]
  5. PREDNISOLONE [Concomitant]

REACTIONS (1)
  - HEPATITIS B [None]
